FAERS Safety Report 16782499 (Version 9)
Quarter: 2020Q4

REPORT INFORMATION
  Report Type: Report from Study
  Country: DE (occurrence: DE)
  Receive Date: 20190906
  Receipt Date: 20201210
  Transmission Date: 20210113
  Serious: Yes (Hospitalization)
  Sender: FDA-Public Use
  Company Number: DE-ROCHE-2397174

PATIENT
  Age: 61 Year
  Sex: Male
  Weight: 150 kg

DRUGS (33)
  1. CLEMASTINE [Concomitant]
     Active Substance: CLEMASTINE
     Route: 042
     Dates: start: 20200303, end: 20200303
  2. PANTOZOLE [Concomitant]
     Active Substance: PANTOPRAZOLE SODIUM
     Indication: GASTRITIS
     Route: 048
     Dates: start: 20190418
  3. TESTOSTERONE. [Concomitant]
     Active Substance: TESTOSTERONE
     Route: 061
     Dates: start: 20191018
  4. TAZOBAC [Concomitant]
     Active Substance: PIPERACILLIN SODIUM\TAZOBACTAM SODIUM
     Indication: INFUSION RELATED REACTION
     Route: 042
     Dates: start: 20190826, end: 20190827
  5. CIMETIDINE [Concomitant]
     Active Substance: CIMETIDINE
     Route: 042
     Dates: start: 20200303, end: 20200303
  6. IBUPROFEN. [Concomitant]
     Active Substance: IBUPROFEN
     Indication: ARTHRALGIA
     Route: 048
     Dates: start: 20190603
  7. PREGABALIN. [Concomitant]
     Active Substance: PREGABALIN
     Indication: EPIDIDYMITIS
     Dosage: AND 150 MG
     Route: 048
     Dates: start: 20190923
  8. CLEXANE [Concomitant]
     Active Substance: ENOXAPARIN SODIUM
     Indication: VENOUS THROMBOSIS LIMB
     Route: 058
     Dates: start: 20190911
  9. FUROSEMID [Concomitant]
     Active Substance: FUROSEMIDE
     Indication: OEDEMA
     Route: 048
     Dates: start: 20190925
  10. PREDNITOP OINTMENT [Concomitant]
     Indication: PRURITUS
     Route: 061
     Dates: start: 20191230
  11. ATEZOLIZUMAB. [Suspect]
     Active Substance: ATEZOLIZUMAB
     Indication: METASTATIC NEOPLASM
     Dosage: MOST RECENT DOSE ON 26/AUG/2019 (1200 MG) PRIOR TO SAE ONSET OF INFUSION RELATED REACTION.?MOST RECE
     Route: 041
     Dates: start: 20190826
  12. PARACETAMOL [Concomitant]
     Active Substance: ACETAMINOPHEN
     Route: 048
     Dates: start: 20190826, end: 20190826
  13. PARACETAMOL [Concomitant]
     Active Substance: ACETAMINOPHEN
     Route: 048
     Dates: start: 20200303, end: 20200303
  14. CLEMASTINE [Concomitant]
     Active Substance: CLEMASTINE
     Route: 042
     Dates: start: 20190826, end: 20190826
  15. RAMIPRIL. [Concomitant]
     Active Substance: RAMIPRIL
     Indication: HYPERTENSION
     Route: 048
     Dates: start: 20190603
  16. NOVAMINSULFON [Concomitant]
     Active Substance: METAMIZOLE
     Indication: TUMOUR PAIN
     Route: 048
     Dates: start: 20191209
  17. RINGERS SOLUTION [Concomitant]
     Active Substance: CALCIUM CHLORIDE\POTASSIUM CHLORIDE\SODIUM CHLORIDE
     Route: 042
     Dates: start: 20200303, end: 20200303
  18. DOXAZOSIN [Concomitant]
     Active Substance: DOXAZOSIN MESYLATE
     Indication: HYPERTENSION
     Route: 048
     Dates: start: 20190523
  19. TESTOSTERONE. [Concomitant]
     Active Substance: TESTOSTERONE
     Indication: GONADOTROPHIN DEFICIENCY
     Route: 058
     Dates: start: 20190805, end: 20191017
  20. SPIRONOLACTON [Concomitant]
     Active Substance: SPIRONOLACTONE
     Indication: OEDEMA
     Route: 048
     Dates: start: 20190930
  21. OXYCODONE [Concomitant]
     Active Substance: OXYCODONE
     Indication: OSTEOARTHRITIS
     Route: 048
     Dates: start: 201902, end: 20190828
  22. RO7198457 (RNA PERSONALISED CANCER VACCINE) [Suspect]
     Active Substance: RO-7198457
     Indication: METASTATIC NEOPLASM
     Dosage: 25 UG IN 21-DAY CYCLES.?DATE OF MOST RECENT DOSE (13 UG) PRIOR TO SAE ONSET: 26/AUG/2019?DATE OF MOS
     Route: 042
     Dates: start: 20190826
  23. CIMETIDINE [Concomitant]
     Active Substance: CIMETIDINE
     Route: 042
     Dates: start: 20190826, end: 20190826
  24. RINGERS SOLUTION [Concomitant]
     Active Substance: CALCIUM CHLORIDE\POTASSIUM CHLORIDE\SODIUM CHLORIDE
     Route: 042
     Dates: start: 20190826, end: 20190826
  25. TESTOSTERONE. [Concomitant]
     Active Substance: TESTOSTERONE
     Indication: GONADOTROPHIN DEFICIENCY
     Route: 061
     Dates: start: 20191018
  26. RO7198457 (RNA PERSONALISED CANCER VACCINE) [Suspect]
     Active Substance: RO-7198457
     Dosage: 13 UG IN 21-DAY CYCLES.?DATE OF MOST RECENT DOSE PRIOR TO SAE ONSET: 30/DEC/2019 FOR HEADACHE
     Route: 042
  27. AMLODIPINE [Concomitant]
     Active Substance: AMLODIPINE BESYLATE
     Indication: HYPERTENSION
     Route: 048
     Dates: start: 20190603
  28. OXYCODONE [Concomitant]
     Active Substance: OXYCODONE
     Dosage: 100 MG EVERY DAY
     Route: 048
     Dates: start: 20191028, end: 20200227
  29. OXYCODONE [Concomitant]
     Active Substance: OXYCODONE
     Route: 048
     Dates: start: 20200228
  30. PREGABALIN. [Concomitant]
     Active Substance: PREGABALIN
     Route: 048
     Dates: start: 20190723
  31. NOVAMINSULFON [Concomitant]
     Active Substance: METAMIZOLE
     Indication: PAIN IN EXTREMITY
  32. CLOTRIMAZOLE. [Concomitant]
     Active Substance: CLOTRIMAZOLE
     Indication: CANDIDA INFECTION
     Route: 061
     Dates: start: 20191112
  33. TIVOZANIB [Concomitant]
     Active Substance: TIVOZANIB
     Indication: NEOPLASM MALIGNANT
     Dates: start: 20190408, end: 20190801

REACTIONS (2)
  - Infusion related reaction [Recovered/Resolved]
  - Headache [Recovered/Resolved]

NARRATIVE: CASE EVENT DATE: 20190826
